FAERS Safety Report 7496416-X (Version None)
Quarter: 2011Q2

REPORT INFORMATION
  Report Type: 
  Country: None (occurrence: None)
  Receive Date: 20110523
  Receipt Date: 20110517
  Transmission Date: 20111010
  Serious: Yes (Hospitalization)
  Sender: FDA-Public Use
  Company Number: GB-TEVA-282620ISR

PATIENT
  Age: 87 Year
  Sex: Female

DRUGS (1)
  1. ALENDRONIC ACID [Suspect]
     Indication: OSTEOPOROTIC FRACTURE
     Dosage: 10 MILLIGRAM;
     Route: 048
     Dates: start: 20050401, end: 20110409

REACTIONS (1)
  - STRESS FRACTURE [None]
